FAERS Safety Report 18037242 (Version 1)
Quarter: 2020Q3

REPORT INFORMATION
  Report Type: Spontaneous
  Country: JP (occurrence: JP)
  Receive Date: 20200717
  Receipt Date: 20200717
  Transmission Date: 20201103
  Serious: Yes (Hospitalization)
  Sender: FDA-Public Use
  Company Number: JP-STRIDES ARCOLAB LIMITED-2020SP008063

PATIENT
  Age: 53 Year
  Sex: Male

DRUGS (3)
  1. AMANTADINE HYDROCHLORIDE. [Suspect]
     Active Substance: AMANTADINE HYDROCHLORIDE
     Dosage: 50 MILLIGRAM, PER DAY ON DAY 101.
     Route: 065
  2. AMANTADINE HYDROCHLORIDE. [Suspect]
     Active Substance: AMANTADINE HYDROCHLORIDE
     Indication: REHABILITATION THERAPY
     Dosage: 150 MILLIGRAM, PER DAY ON DAY 56.
     Route: 048
  3. AMANTADINE HYDROCHLORIDE. [Suspect]
     Active Substance: AMANTADINE HYDROCHLORIDE
     Indication: HYPOKINESIA
     Dosage: 100 MILLIGRAM, PER DAY, ON DAY 49.
     Route: 048

REACTIONS (6)
  - Renal impairment [Recovered/Resolved]
  - Off label use [Unknown]
  - Hypophagia [Recovered/Resolved]
  - Toxicity to various agents [Unknown]
  - Myoclonus [Recovered/Resolved]
  - Hallucination [Recovered/Resolved]
